FAERS Safety Report 5957064-3 (Version None)
Quarter: 2008Q4

REPORT INFORMATION
  Report Type: 
  Country: None (occurrence: None)
  Receive Date: 20081118
  Receipt Date: 20081110
  Transmission Date: 20090506
  Serious: Yes (Hospitalization, Other)
  Sender: FDA-Public Use
  Company Number: PHHY2008CA27597

PATIENT
  Sex: Female

DRUGS (2)
  1. CLOZARIL [Suspect]
     Indication: SCHIZOPHRENIA, PARANOID TYPE
     Dosage: 200 MG, QHS
     Route: 048
     Dates: end: 20081103
  2. ZELDOX [Concomitant]
     Dosage: 80 MG, BID
     Route: 048

REACTIONS (3)
  - AGITATION [None]
  - ELECTROCARDIOGRAM QT INTERVAL ABNORMAL [None]
  - PARANOIA [None]
